FAERS Safety Report 23669348 (Version 1)
Quarter: 2024Q1

REPORT INFORMATION
  Report Type: Spontaneous
  Country: US (occurrence: None)
  Receive Date: 20240324
  Receipt Date: 20240324
  Transmission Date: 20240410
  Serious: Yes (Disabling)
  Sender: FDA-Public Use
  Company Number: None

PATIENT
  Age: 67 Year
  Sex: Female
  Weight: 70.2 kg

DRUGS (10)
  1. FLUOXETINE [Suspect]
     Active Substance: FLUOXETINE HYDROCHLORIDE
     Indication: Depression
     Dosage: OTHER QUANTITY : 1 CAPSULE(S);?
     Route: 048
     Dates: start: 20231213, end: 20240315
  2. METFORMIN [Concomitant]
  3. Effoxor [Concomitant]
  4. Tipiramate [Concomitant]
  5. RAMIPRIL [Concomitant]
     Active Substance: RAMIPRIL
  6. SIMVASTATIN [Concomitant]
  7. AMLODIPINE [Concomitant]
     Active Substance: AMLODIPINE BESYLATE
  8. L-methylfoate [Concomitant]
  9. ASPIRIN [Concomitant]
     Active Substance: ASPIRIN
  10. UNSPECIFIED INGREDIENT [Concomitant]
     Active Substance: UNSPECIFIED INGREDIENT

REACTIONS (8)
  - Depression [None]
  - Bedridden [None]
  - Nausea [None]
  - Middle insomnia [None]
  - Balance disorder [None]
  - Fall [None]
  - Tremor [None]
  - Weight decreased [None]

NARRATIVE: CASE EVENT DATE: 20240215
